FAERS Safety Report 4893501-3 (Version None)
Quarter: 2006Q1

REPORT INFORMATION
  Report Type: 
  Country: None (occurrence: None)
  Receive Date: 20060127
  Receipt Date: 20060118
  Transmission Date: 20060701
  Serious: Yes (Hospitalization, Other)
  Sender: FDA-Public Use
  Company Number: PHBS2006IT01077

PATIENT
  Age: 61 Year
  Sex: Male

DRUGS (4)
  1. STEROIDS NOS [Concomitant]
  2. INTERFERON ALFA-2A [Suspect]
  3. RIBAVIRIN [Suspect]
  4. CYCLOSPORINE [Suspect]
     Indication: LIVER TRANSPLANT
     Route: 065
     Dates: start: 20021201

REACTIONS (14)
  - ALANINE AMINOTRANSFERASE INCREASED [None]
  - ASPARTATE AMINOTRANSFERASE INCREASED [None]
  - BLOOD BILIRUBIN INCREASED [None]
  - BONE SWELLING [None]
  - FALL [None]
  - HEPATIC CIRRHOSIS [None]
  - HEPATIC NEOPLASM [None]
  - HEPATITIS C [None]
  - LIVER FUNCTION TEST ABNORMAL [None]
  - LUNG NEOPLASM [None]
  - MASS EXCISION [None]
  - METASTASES TO BONE [None]
  - OSTEOLYSIS [None]
  - PANCYTOPENIA [None]
